FAERS Safety Report 7078447-7 (Version None)
Quarter: 2010Q4

REPORT INFORMATION
  Report Type: 
  Country: None (occurrence: None)
  Receive Date: 20101102
  Receipt Date: 20101021
  Transmission Date: 20110411
  Serious: Yes (Death, Hospitalization, Other)
  Sender: FDA-Public Use
  Company Number: US-BAYER-201038219NA

PATIENT
  Sex: Female

DRUGS (1)
  1. TRASYLOL [Suspect]
     Indication: HEART VALVE OPERATION
     Dosage: 2 DOSE FORMS
     Dates: start: 20060801

REACTIONS (2)
  - MULTI-ORGAN FAILURE [None]
  - RENAL FAILURE [None]
